FAERS Safety Report 25246089 (Version 1)
Quarter: 2025Q2

REPORT INFORMATION
  Report Type: Spontaneous
  Country: FR (occurrence: FR)
  Receive Date: 20250428
  Receipt Date: 20250428
  Transmission Date: 20250717
  Serious: Yes (Other)
  Sender: PFIZER
  Company Number: None

PATIENT
  Age: 63 Year
  Sex: Female
  Weight: 57 kg

DRUGS (10)
  1. RUXIENCE [Suspect]
     Active Substance: RITUXIMAB-PVVR
     Indication: Diffuse large B-cell lymphoma
     Dosage: 565 MG, 1X/DAY
     Route: 042
     Dates: start: 20241003, end: 20241003
  2. ASPIRIN [Concomitant]
     Active Substance: ASPIRIN
     Indication: Cardiovascular event prophylaxis
     Dosage: 100 MG, 1X/DAY
     Route: 042
     Dates: start: 20241003, end: 20241005
  3. ACICLOVIRUM [Concomitant]
     Indication: Opportunistic infection prophylaxis
     Route: 042
     Dates: start: 20240926
  4. VINCRISTINE [Concomitant]
     Active Substance: VINCRISTINE
     Indication: Diffuse large B-cell lymphoma
     Route: 042
     Dates: start: 20241002, end: 20241002
  5. DOXORUBICIN [Concomitant]
     Active Substance: DOXORUBICIN
     Indication: Diffuse large B-cell lymphoma
     Route: 042
     Dates: start: 20241002, end: 20241002
  6. CYCLOPHOSPHAMIDE [Concomitant]
     Active Substance: CYCLOPHOSPHAMIDE
     Indication: Diffuse large B-cell lymphoma
     Route: 042
     Dates: start: 20241002, end: 20241002
  7. METHYLPREDNISOLONE [Concomitant]
     Active Substance: METHYLPREDNISOLONE
     Indication: Diffuse large B-cell lymphoma
     Dosage: 60 MG, 1X/DAY
     Route: 042
     Dates: start: 20241003, end: 20241008
  8. HEPARIN SODIUM [Concomitant]
     Active Substance: HEPARIN SODIUM
     Indication: Thrombosis prophylaxis
     Dosage: 10000 IU, 1X/DAY
     Route: 042
     Dates: start: 20240929, end: 20241009
  9. PIPERACILIN/TAZOBAKTAM KABI [Concomitant]
     Indication: Febrile neutropenia
     Dosage: 3 DF, 1X/DAY
     Route: 042
     Dates: start: 20240929, end: 20241011
  10. UMULINE [Concomitant]
     Active Substance: INSULIN HUMAN
     Indication: Hyperglycaemia
     Route: 042
     Dates: start: 20241001, end: 20241013

REACTIONS (1)
  - Seizure [Recovered/Resolved]

NARRATIVE: CASE EVENT DATE: 20241003
